FAERS Safety Report 16373823 (Version 3)
Quarter: 2019Q3

REPORT INFORMATION
  Report Type: Spontaneous
  Country: AT (occurrence: AT)
  Receive Date: 20190530
  Receipt Date: 20190807
  Transmission Date: 20191004
  Serious: Yes (Hospitalization)
  Sender: FDA-Public Use
  Company Number: PHHY2019AT124034

PATIENT
  Age: 20 Year
  Sex: Male

DRUGS (1)
  1. COSENTYX [Suspect]
     Active Substance: SECUKINUMAB
     Indication: PSORIATIC ARTHROPATHY
     Dosage: UNK (EVERY 6 WEEKS)
     Route: 065

REACTIONS (19)
  - Photophobia [Unknown]
  - Arthropod bite [Unknown]
  - Tongue coated [Unknown]
  - Hepatosplenomegaly [Unknown]
  - Fatigue [Unknown]
  - Pyrexia [Unknown]
  - Headache [Unknown]
  - Decreased appetite [Unknown]
  - Influenza like illness [Unknown]
  - Haemorrhagic fever with renal syndrome [Unknown]
  - Body temperature increased [Unknown]
  - Inappropriate schedule of product administration [Unknown]
  - Blood creatinine increased [Unknown]
  - Epstein-Barr virus infection [Unknown]
  - Pain in extremity [Unknown]
  - Vomiting [Unknown]
  - Leukocytosis [Unknown]
  - Cough [Unknown]
  - Musculoskeletal stiffness [Unknown]
